FAERS Safety Report 19472897 (Version 1)
Quarter: 2021Q2

REPORT INFORMATION
  Report Type: Report from Study
  Country: JP (occurrence: JP)
  Receive Date: 20210629
  Receipt Date: 20210629
  Transmission Date: 20210717
  Serious: Yes (Other)
  Sender: FDA-Public Use
  Company Number: JP-JNJFOC-20210660993

PATIENT

DRUGS (1)
  1. ZYTIGA [Suspect]
     Active Substance: ABIRATERONE ACETATE
     Indication: PROSTATE CANCER METASTATIC
     Dosage: DOSE UNKNOWN
     Route: 048

REACTIONS (5)
  - Fluid retention [Unknown]
  - Oedema [Unknown]
  - Pneumonia [Unknown]
  - Hepatic function abnormal [Unknown]
  - Hypokalaemia [Unknown]
